FAERS Safety Report 18427238 (Version 1)
Quarter: 2020Q4

REPORT INFORMATION
  Report Type: Spontaneous
  Country: US (occurrence: US)
  Receive Date: 20201026
  Receipt Date: 20201026
  Transmission Date: 20210114
  Serious: No
  Sender: FDA-Public Use
  Company Number: US-MYLANLABS-2020M1088366

PATIENT
  Sex: Female

DRUGS (3)
  1. EXEMESTANE TABLETS [Suspect]
     Active Substance: EXEMESTANE
     Indication: HOT FLUSH
     Dosage: UNK
     Route: 048
  2. EXEMESTANE TABLETS [Suspect]
     Active Substance: EXEMESTANE
     Indication: BREAST CANCER
  3. EXEMESTANE TABLETS [Suspect]
     Active Substance: EXEMESTANE
     Indication: HORMONE LEVEL ABNORMAL

REACTIONS (1)
  - Alopecia [Not Recovered/Not Resolved]
